FAERS Safety Report 8455337-6 (Version None)
Quarter: 2012Q2

REPORT INFORMATION
  Report Type: 
  Country: None (occurrence: None)
  Receive Date: 20120621
  Receipt Date: 20120612
  Transmission Date: 20120825
  Serious: Yes (Life-Threatening, Hospitalization)
  Sender: FDA-Public Use
  Company Number: FR-PFIZER INC-2012147444

PATIENT
  Age: 60 Year
  Sex: Female

DRUGS (14)
  1. AMIKACIN [Suspect]
     Dosage: UNK
     Route: 042
     Dates: start: 20120119, end: 20120125
  2. PANTOPRAZOLE [Suspect]
     Dosage: UNK
     Dates: start: 20120109, end: 20120117
  3. NEXIUM [Suspect]
     Dosage: UNK
     Route: 048
     Dates: start: 20120120, end: 20120208
  4. CORDARONE [Suspect]
     Dosage: UNK
     Route: 042
     Dates: start: 20120117, end: 20120129
  5. IMIPENEM AND CILASTATIN SODIUM [Suspect]
     Dosage: UNK
     Route: 042
     Dates: start: 20120121, end: 20120203
  6. IOMERON-150 [Suspect]
     Dosage: UNK
     Route: 042
     Dates: start: 20120131, end: 20120131
  7. ATENOLOL [Suspect]
     Dosage: UNK
     Route: 048
     Dates: start: 20120208, end: 20120215
  8. ZYVOX [Suspect]
     Dosage: UNK
     Route: 042
     Dates: start: 20120205, end: 20120207
  9. ZANTAC [Suspect]
     Dosage: UNK
     Route: 048
     Dates: start: 20120208, end: 20120210
  10. ASPIRIN [Suspect]
     Dosage: UNK
     Route: 048
     Dates: start: 20120206, end: 20120215
  11. VANCOMYCIN HYCHLORIDE [Suspect]
     Dosage: UNK
     Route: 042
     Dates: start: 20120119, end: 20120126
  12. PAROXETINE HCL [Suspect]
     Dosage: UNK
     Route: 048
     Dates: start: 20120206, end: 20120213
  13. TAZOBACTAM [Suspect]
     Dosage: UNK
     Route: 042
     Dates: start: 20120115, end: 20120121
  14. FUROSEMIDE [Suspect]
     Dosage: UNK
     Route: 042
     Dates: start: 20120109, end: 20120122

REACTIONS (4)
  - PNEUMONIA [None]
  - ACUTE RESPIRATORY DISTRESS SYNDROME [None]
  - NEUTROPENIA [None]
  - DRUG RASH WITH EOSINOPHILIA AND SYSTEMIC SYMPTOMS [None]
